FAERS Safety Report 7400308-1 (Version None)
Quarter: 2011Q2

REPORT INFORMATION
  Report Type: 
  Country: None (occurrence: None)
  Receive Date: 20110407
  Receipt Date: 20110329
  Transmission Date: 20111010
  Serious: Yes (Congenital Anomaly)
  Sender: FDA-Public Use
  Company Number: US-ASTRAZENECA-2011SE18089

PATIENT

DRUGS (1)
  1. NEXIUM [Suspect]
     Route: 065
     Dates: start: 20010101

REACTIONS (1)
  - HEART DISEASE CONGENITAL [None]
